FAERS Safety Report 9171440 (Version 2)
Quarter: 2013Q3

REPORT INFORMATION
  Report Type: Spontaneous
  Country: FR (occurrence: FR)
  Receive Date: 20130319
  Receipt Date: 20130810
  Transmission Date: 20140515
  Serious: Yes (Hospitalization, Other)
  Sender: FDA-Public Use
  Company Number: FR-ROCHE-1203165

PATIENT
  Age: 73 Year
  Sex: Female

DRUGS (9)
  1. LUCENTIS [Suspect]
     Indication: AGE-RELATED MACULAR DEGENERATION
     Route: 050
  2. ALTIM [Suspect]
     Indication: SCIATICA
     Route: 065
  3. CLAMOXYL [Suspect]
     Indication: PRODUCT USED FOR UNKNOWN INDICATION
     Route: 065
  4. DIAMOX [Suspect]
     Indication: PRODUCT USED FOR UNKNOWN INDICATION
     Route: 048
  5. LEVOTHYROX [Concomitant]
  6. IMOVANE [Concomitant]
  7. TRANSILANE [Concomitant]
  8. CYMBALTA [Concomitant]
  9. INEXIUM [Concomitant]
     Indication: DUODENAL ULCER
     Route: 048
     Dates: start: 20120930

REACTIONS (1)
  - Drug reaction with eosinophilia and systemic symptoms [Recovered/Resolved]
